FAERS Safety Report 4586588-9 (Version None)
Quarter: 2005Q1

REPORT INFORMATION
  Report Type: 
  Country: None (occurrence: None)
  Receive Date: 20050218
  Receipt Date: 20040511
  Transmission Date: 20050727
  Serious: No
  Sender: FDA-Public Use
  Company Number: US-BRISTOL-MYERS SQUIBB COMPANY-12586962

PATIENT
  Age: 68 Year
  Sex: Female

DRUGS (4)
  1. CARBOPLATIN [Suspect]
     Indication: OVARIAN CANCER
     Dosage: RECHALLENGE: 11-OCT-2003
     Dates: start: 20031001, end: 20031001
  2. TAXOL [Suspect]
     Indication: OVARIAN CANCER
     Dosage: RECHALLENGE: 11-OCT-2003
     Dates: start: 20031001, end: 20031001
  3. DECADRON [Concomitant]
     Indication: PREMEDICATION
     Dates: start: 20031001, end: 20031011
  4. ZOFRAN [Concomitant]
     Indication: PREMEDICATION
     Dates: start: 20031001, end: 20031011

REACTIONS (5)
  - DYSPNOEA [None]
  - EYE SWELLING [None]
  - PHARYNGOLARYNGEAL PAIN [None]
  - PRURITUS [None]
  - SWELLING FACE [None]
